FAERS Safety Report 15096171 (Version 2)
Quarter: 2018Q3

REPORT INFORMATION
  Report Type: Report from Study
  Country: US (occurrence: US)
  Receive Date: 20180702
  Receipt Date: 20180705
  Transmission Date: 20181010
  Serious: Yes (Hospitalization, Other)
  Sender: FDA-Public Use
  Company Number: US-GILEAD-2018-0348038

PATIENT
  Age: 60 Year
  Sex: Female

DRUGS (14)
  1. AMBRISENTAN [Suspect]
     Active Substance: AMBRISENTAN
     Indication: PULMONARY ARTERIAL HYPERTENSION
     Dosage: 10 MG, QD
     Route: 065
     Dates: start: 20180511
  2. POTASSIUM [Concomitant]
     Active Substance: POTASSIUM
  3. NEXIUM [Concomitant]
     Active Substance: ESOMEPRAZOLE MAGNESIUM
  4. METOPROLOL. [Concomitant]
     Active Substance: METOPROLOL
  5. LEVOTHYROXINE. [Concomitant]
     Active Substance: LEVOTHYROXINE
  6. DULOXETINE. [Concomitant]
     Active Substance: DULOXETINE
  7. RANITIDINE. [Concomitant]
     Active Substance: RANITIDINE
  8. LISINOPRIL. [Concomitant]
     Active Substance: LISINOPRIL
  9. CLONAZEPAM. [Concomitant]
     Active Substance: CLONAZEPAM
  10. MORPHINE SULFATE. [Concomitant]
     Active Substance: MORPHINE SULFATE
  11. GABAPENTIN. [Concomitant]
     Active Substance: GABAPENTIN
  12. LEVOFLOXACIN. [Concomitant]
     Active Substance: LEVOFLOXACIN
  13. ELIQUIS [Concomitant]
     Active Substance: APIXABAN
  14. MORPHINE [Concomitant]
     Active Substance: MORPHINE

REACTIONS (7)
  - Breath sounds abnormal [Recovered/Resolved]
  - Hypotension [Recovered/Resolved]
  - Pneumonia [Recovered/Resolved]
  - Fatigue [Unknown]
  - Nausea [Unknown]
  - Nasal congestion [Unknown]
  - Epistaxis [Unknown]

NARRATIVE: CASE EVENT DATE: 20180606
